FAERS Safety Report 7119591-5 (Version None)
Quarter: 2010Q4

REPORT INFORMATION
  Report Type: 
  Country: None (occurrence: None)
  Receive Date: 20101123
  Receipt Date: 20101118
  Transmission Date: 20110411
  Serious: No
  Sender: FDA-Public Use
  Company Number: US-B.I. PHARMACEUTICALS,INC./RIDGEFIELD-2010-BP-09296PF

PATIENT
  Age: 85 Year
  Sex: Female
  Weight: 54.43 kg

DRUGS (3)
  1. SPIRIVA [Suspect]
  2. ALENDRONATE SODIUM [Concomitant]
     Dosage: 70
  3. PROAIR HFA [Concomitant]
     Dosage: 2 PUFFS QID PRN

REACTIONS (1)
  - DRUG INEFFECTIVE [None]
